FAERS Safety Report 10078947 (Version 2)
Quarter: 2014Q2

REPORT INFORMATION
  Report Type: Spontaneous
  Country: NL (occurrence: NL)
  Receive Date: 20140415
  Receipt Date: 20140429
  Transmission Date: 20141212
  Serious: Yes (Life-Threatening, Hospitalization, Disabling)
  Sender: FDA-Public Use
  Company Number: NL-INCYTE CORPORATION-2014IN000956

PATIENT
  Age: 77 Year
  Sex: Male

DRUGS (4)
  1. JAKAVI [Suspect]
     Indication: MYELOFIBROSIS
     Dosage: 10 MG, BID
     Route: 048
     Dates: start: 201312
  2. JAKAVI [Suspect]
     Dosage: 15 MG, BID
     Route: 065
     Dates: start: 20140307
  3. PANTOZOL                           /01263204/ [Concomitant]
  4. FERRO FUMARAT [Concomitant]

REACTIONS (8)
  - Pericardial effusion [Not Recovered/Not Resolved]
  - Pleural effusion [Not Recovered/Not Resolved]
  - Oedema peripheral [Recovering/Resolving]
  - Leukoerythroblastosis [Not Recovered/Not Resolved]
  - Dyspnoea [Unknown]
  - Oedema [Not Recovered/Not Resolved]
  - Leukocytosis [Recovered/Resolved]
  - Splenomegaly [Unknown]
